FAERS Safety Report 8572553-3 (Version None)
Quarter: 2012Q3

REPORT INFORMATION
  Report Type: 
  Country: None (occurrence: None)
  Receive Date: 20120806
  Receipt Date: 20120727
  Transmission Date: 20120928
  Serious: Yes (Other)
  Sender: FDA-Public Use
  Company Number: JP-VERTEX PHARMACEUTICALS INC.-AE-2012-006668

PATIENT
  Age: 57 Year
  Sex: Female

DRUGS (13)
  1. REBETOL [Concomitant]
     Route: 048
     Dates: start: 20120614
  2. TELAVIC (TELAPREVIR) [Suspect]
     Route: 048
     Dates: start: 20120322, end: 20120418
  3. REBETOL [Concomitant]
     Route: 048
     Dates: start: 20120419, end: 20120425
  4. REBETOL [Concomitant]
     Route: 048
     Dates: start: 20120426, end: 20120509
  5. REBETOL [Concomitant]
     Route: 048
     Dates: start: 20120531, end: 20120613
  6. TALION OD [Concomitant]
     Route: 048
     Dates: start: 20120206
  7. REBETOL [Concomitant]
     Indication: HEPATITIS C
     Route: 048
     Dates: start: 20120127, end: 20120308
  8. REBETOL [Concomitant]
     Route: 048
     Dates: start: 20120329, end: 20120418
  9. TELAVIC (TELAPREVIR) [Suspect]
     Indication: HEPATITIS C
     Route: 048
     Dates: start: 20120127, end: 20120321
  10. REBETOL [Concomitant]
     Route: 048
     Dates: start: 20120510, end: 20120530
  11. PEGINTERFERON ALFA-2A [Concomitant]
     Indication: HEPATITIS C
     Route: 058
     Dates: start: 20120127, end: 20120705
  12. AMLODIPINE [Concomitant]
     Route: 048
  13. REBETOL [Concomitant]
     Route: 048
     Dates: start: 20120308, end: 20120322

REACTIONS (1)
  - WHITE BLOOD CELL COUNT DECREASED [None]
